FAERS Safety Report 13387367 (Version 3)
Quarter: 2017Q2

REPORT INFORMATION
  Report Type: Spontaneous
  Country: US (occurrence: US)
  Receive Date: 20170330
  Receipt Date: 20170502
  Transmission Date: 20170830
  Serious: Yes (Hospitalization)
  Sender: FDA-Public Use
  Company Number: US-VERTEX PHARMACEUTICALS-2017-001736

PATIENT
  Sex: Female
  Weight: 64 kg

DRUGS (10)
  1. HYPERTONIC SALINE SOLUTION [Concomitant]
     Active Substance: SODIUM CHLORIDE
     Dosage: UNK, BID
  2. NACL [Concomitant]
     Active Substance: SODIUM CHLORIDE
  3. KALYDECO [Suspect]
     Active Substance: IVACAFTOR
     Indication: CYSTIC FIBROSIS
     Dosage: 150 MG, BID
     Route: 048
     Dates: start: 20150112
  4. KALYDECO [Suspect]
     Active Substance: IVACAFTOR
     Dosage: 150 MG, BID
     Route: 048
     Dates: start: 20170402
  5. VITAMIN D3 [Concomitant]
     Active Substance: CHOLECALCIFEROL
  6. NOVOLOG [Concomitant]
     Active Substance: INSULIN ASPART
     Dosage: ON SLIDING SCALE
  7. LEVEMIR [Concomitant]
     Active Substance: INSULIN DETEMIR
     Dosage: 30 UT, DAILY
  8. PULMOZYME [Concomitant]
     Active Substance: DORNASE ALFA
     Dosage: UNK, QD
  9. ALBUTEROL. [Concomitant]
     Active Substance: ALBUTEROL
     Dosage: 4 TIMES A DAY
  10. FLONASE [Concomitant]
     Active Substance: FLUTICASONE PROPIONATE
     Dosage: 50 ?G, BID
     Route: 055

REACTIONS (3)
  - Treatment noncompliance [Unknown]
  - Weight decreased [Not Recovered/Not Resolved]
  - Diabetes mellitus [Recovered/Resolved]

NARRATIVE: CASE EVENT DATE: 2016
